FAERS Safety Report 7414544-1 (Version None)
Quarter: 2011Q2

REPORT INFORMATION
  Report Type: 
  Country: None (occurrence: None)
  Receive Date: 20110414
  Receipt Date: 20110408
  Transmission Date: 20111010
  Serious: Yes (Hospitalization)
  Sender: FDA-Public Use
  Company Number: US-SANOFI-AVENTIS-2011SA015242

PATIENT
  Age: 30 Year
  Sex: Female

DRUGS (2)
  1. LOVENOX [Suspect]
     Indication: PULMONARY EMBOLISM
     Route: 065
     Dates: start: 20110305, end: 20110407
  2. LOVENOX [Suspect]
     Route: 065
     Dates: start: 20110408

REACTIONS (4)
  - ABORTION SPONTANEOUS [None]
  - FUNGAL INFECTION [None]
  - DRUG EXPOSURE DURING PREGNANCY [None]
  - PAIN [None]
